FAERS Safety Report 19468125 (Version 1)
Quarter: 2021Q2

REPORT INFORMATION
  Report Type: Spontaneous
  Country: US (occurrence: US)
  Receive Date: 20210628
  Receipt Date: 20210628
  Transmission Date: 20210717
  Serious: Yes (Other)
  Sender: FDA-Public Use
  Company Number: US-JNJFOC-20210645705

PATIENT

DRUGS (1)
  1. ELMIRON [Suspect]
     Active Substance: PENTOSAN POLYSULFATE SODIUM
     Indication: CYSTITIS INTERSTITIAL
     Dosage: FOR APPROXIMATELY 15 YEARS
     Route: 048
     Dates: start: 2004, end: 2019

REACTIONS (2)
  - Maculopathy [Unknown]
  - Retinal injury [Unknown]
